FAERS Safety Report 7878710-3 (Version None)
Quarter: 2011Q4

REPORT INFORMATION
  Report Type: 
  Country: None (occurrence: None)
  Receive Date: 20111028
  Receipt Date: 20111014
  Transmission Date: 20120403
  Serious: Yes (Death, Hospitalization)
  Sender: FDA-Public Use
  Company Number: 2011MA015390

PATIENT
  Age: 78 Year
  Sex: Male

DRUGS (9)
  1. LEVEMIR [Concomitant]
  2. ISOPTIN [Concomitant]
  3. FUROSEMIDE [Concomitant]
  4. ANOPYRIN [Concomitant]
  5. LEVOTHYROXINE SODIUM [Concomitant]
  6. IBUPROFEN [Suspect]
     Dosage: PO
     Route: 048
     Dates: start: 20110701, end: 20110901
  7. TROMBEX [Concomitant]
  8. MILURIT [Concomitant]
  9. ATORGAMMA [Concomitant]

REACTIONS (2)
  - NEPHROPATHY TOXIC [None]
  - CARDIOPULMONARY FAILURE [None]
